FAERS Safety Report 21461635 (Version 1)
Quarter: 2022Q4

REPORT INFORMATION
  Report Type: Spontaneous
  Country: IR (occurrence: IR)
  Receive Date: 20221015
  Receipt Date: 20221015
  Transmission Date: 20230112
  Serious: Yes (Other)
  Sender: FDA-Public Use
  Company Number: IR-Accord-238592

PATIENT
  Age: 57 Year
  Sex: Female

DRUGS (3)
  1. CARBIDOPA\LEVODOPA [Suspect]
     Active Substance: CARBIDOPA\LEVODOPA
     Indication: Parkinson^s disease
     Dosage: 200/50MG, 8 TIMES A DAY, DECREASED TO 100/25 MG, FIVE TIMES A DAY
  2. PRAMIPEXOLE [Concomitant]
     Active Substance: PRAMIPEXOLE
     Indication: Parkinson^s disease
     Dosage: 0.18 MG, 2 TIMES A DAY
  3. AMANTADINE [Concomitant]
     Active Substance: AMANTADINE
     Indication: Parkinson^s disease
     Dosage: ONCE DAILY

REACTIONS (2)
  - Parkinsonian gait [Recovering/Resolving]
  - Dyskinesia [Recovering/Resolving]
